FAERS Safety Report 7233018-4 (Version None)
Quarter: 2011Q1

REPORT INFORMATION
  Report Type: 
  Country: None (occurrence: None)
  Receive Date: 20110119
  Receipt Date: 20110107
  Transmission Date: 20110831
  Serious: Yes (Death)
  Sender: FDA-Public Use
  Company Number: DE-ACTELION-A-CH2011-43602

PATIENT
  Sex: Male

DRUGS (4)
  1. VENTAVIS [Suspect]
     Indication: PULMONARY ARTERIAL HYPERTENSION
     Dosage: UNK
     Dates: start: 20080201
  2. TRACLEER [Suspect]
     Indication: PULMONARY ARTERIAL HYPERTENSION
     Dosage: UNK , UNK
     Route: 048
     Dates: start: 20070316, end: 20070502
  3. SITAXENTAN [Suspect]
     Dosage: UNK
     Route: 048
     Dates: start: 20071001, end: 20101030
  4. OXYGEN [Concomitant]

REACTIONS (4)
  - RESPIRATORY FAILURE [None]
  - PULMONARY FUNCTION TEST DECREASED [None]
  - MUSCULAR WEAKNESS [None]
  - DYSPNOEA [None]
